FAERS Safety Report 18937347 (Version 1)
Quarter: 2021Q1

REPORT INFORMATION
  Report Type: Report from Study
  Country: US (occurrence: US)
  Receive Date: 20210224
  Receipt Date: 20210224
  Transmission Date: 20210420
  Serious: Yes (Other)
  Sender: FDA-Public Use
  Company Number: US-TEVA-2021-US-1879268

PATIENT
  Sex: Female

DRUGS (9)
  1. LEVOFLOXACIN. [Suspect]
     Active Substance: LEVOFLOXACIN
     Route: 065
  2. GADOLINIUM [Suspect]
     Active Substance: GADOLINIUM
     Route: 065
  3. NITROFURANTOIN. [Suspect]
     Active Substance: NITROFURANTOIN
     Route: 065
  4. COPAXONE [Suspect]
     Active Substance: GLATIRAMER ACETATE
     Dosage: FORM STRENGTH:UNKNOWN
     Route: 065
  5. ERYTHROMYCIN. [Suspect]
     Active Substance: ERYTHROMYCIN
     Route: 065
  6. PENICILLIN [Suspect]
     Active Substance: PENICILLIN
     Route: 065
  7. TETRACYCLINE [Suspect]
     Active Substance: TETRACYCLINE
     Route: 065
  8. CIPROFLOXACIN. [Suspect]
     Active Substance: CIPROFLOXACIN
     Route: 065
  9. OFLOXACIN. [Suspect]
     Active Substance: OFLOXACIN
     Route: 065

REACTIONS (15)
  - Rash [Unknown]
  - Dizziness [Unknown]
  - Pain in extremity [Unknown]
  - Drug hypersensitivity [Unknown]
  - Burning sensation [Unknown]
  - Paraesthesia [Unknown]
  - Throat tightness [Unknown]
  - Oral candidiasis [Unknown]
  - Pain [Unknown]
  - Tachycardia [Unknown]
  - Pharyngeal swelling [Unknown]
  - Asthenia [Unknown]
  - Scar [Unknown]
  - Rash erythematous [Unknown]
  - Pyrexia [Unknown]
